FAERS Safety Report 25077313 (Version 1)
Quarter: 2025Q1

REPORT INFORMATION
  Report Type: Spontaneous
  Country: US (occurrence: US)
  Receive Date: 20250314
  Receipt Date: 20250314
  Transmission Date: 20250408
  Serious: No
  Sender: TWI PHARMACEUTICALS
  Company Number: US-TWI PHARMACEUTICAL, INC-20240900129

PATIENT
  Age: 76 Year
  Sex: Female

DRUGS (2)
  1. TENORMIN [Suspect]
     Active Substance: ATENOLOL
     Indication: Blood pressure abnormal
     Route: 048
     Dates: start: 202408
  2. TENORMIN [Suspect]
     Active Substance: ATENOLOL
     Route: 048

REACTIONS (4)
  - Headache [Unknown]
  - Dizziness [Unknown]
  - Product physical issue [Unknown]
  - Wrong technique in product usage process [Unknown]

NARRATIVE: CASE EVENT DATE: 20240901
